FAERS Safety Report 7581365-9 (Version None)
Quarter: 2011Q2

REPORT INFORMATION
  Report Type: 
  Country: None (occurrence: None)
  Receive Date: 20110629
  Receipt Date: 20110622
  Transmission Date: 20111010
  Serious: Yes (Other)
  Sender: FDA-Public Use
  Company Number: US-PFIZER INC-2011103630

PATIENT
  Sex: Female
  Weight: 75.51 kg

DRUGS (27)
  1. ZITHROMAX [Suspect]
     Dosage: 1 DF, UNK
  2. LIPITOR [Concomitant]
     Indication: LOW DENSITY LIPOPROTEIN INCREASED
     Dosage: 10 MG, DAILY AT BEDTIME
     Route: 048
  3. WELLBUTRIN XL [Concomitant]
     Dosage: 300 MG, DAILY
     Route: 048
  4. TRETINOIN [Concomitant]
     Dosage: 0.05% GEL 2-3 TIMES PER WEEK
  5. VITAMIN B COMPLEX CAP [Concomitant]
     Dosage: DAILY
     Route: 048
  6. OXAPROZIN [Concomitant]
     Dosage: 600 MG, DAILY AS NEEDED
     Route: 048
  7. ZITHROMAX [Suspect]
     Dosage: UNK
     Dates: start: 20110422, end: 20110426
  8. SONATA [Concomitant]
     Dosage: 5 MG, AT NIGHT AS NEEDED
     Route: 048
  9. ZITHROMAX [Suspect]
     Indication: SINUSITIS
     Dosage: UNK
     Route: 048
     Dates: start: 20110108
  10. FISH OIL [Concomitant]
     Dosage: 1200 MG, 1X/DAY
     Route: 048
  11. MULTI-VITAMINS [Concomitant]
     Dosage: DAILY
     Route: 048
  12. NASONEX [Concomitant]
     Dosage: 50 UG, (2 SPRAYS EACH NOSTRIL) DAILY
  13. ASPIRIN [Concomitant]
     Dosage: 81 MG, 1X/DAY
     Route: 048
  14. VALIUM [Concomitant]
     Dosage: 5 MG (0.5-1) ONCE DAILY AS NEEDED
     Route: 048
  15. ESTRADERM [Concomitant]
     Dosage: 0.1 MG FOR 24 HOURS PATCH
  16. PROMETRIUM [Concomitant]
     Dosage: 100 MG, AT BED TIME
     Route: 048
  17. LEVOTHYROXINE [Concomitant]
     Dosage: 75 UG, 1X/DAY
     Route: 048
  18. OCEAN NASAL SPRAY [Concomitant]
     Dosage: ONE SPRAY EACH NOSTRIL ONCE DAILY
  19. ASCORBIC ACID [Concomitant]
     Dosage: 100 MG, 3X/DAY
     Route: 048
  20. ZITHROMAX [Suspect]
     Dosage: 2 DF, UNK
  21. M.V.I. [Concomitant]
     Dosage: UNK
     Route: 048
  22. BIOTIN [Concomitant]
     Dosage: 2.5 MG, 1X/DAY
     Route: 048
  23. CALCIUM CARBONATE [Concomitant]
     Dosage: 500 MG, DAILY AS NEEDED
  24. LISINOPRIL [Concomitant]
     Indication: BLOOD PRESSURE MANAGEMENT
     Dosage: 20 MG, DAILY
     Route: 048
  25. PREVACID [Concomitant]
     Dosage: 30 MG, 1X/DAY
     Route: 048
  26. CHONDROITIN/GLUCOSAMINE [Concomitant]
     Dosage: 1000 MG, 1X/DAY
     Route: 048
  27. NIACIN [Concomitant]
     Dosage: 500 MG, 1X/DAY
     Route: 048

REACTIONS (4)
  - ELECTROCARDIOGRAM ST SEGMENT DEPRESSION [None]
  - MITRAL VALVE INCOMPETENCE [None]
  - SINUS OPERATION [None]
  - ANGINA PECTORIS [None]
